FAERS Safety Report 5546287-3 (Version None)
Quarter: 2007Q4

REPORT INFORMATION
  Report Type: 
  Country: None (occurrence: None)
  Receive Date: 20071211
  Receipt Date: 20070301
  Transmission Date: 20080405
  Serious: No
  Sender: FDA-Public Use
  Company Number: US-AMGEN-KDL213362

PATIENT
  Sex: Male

DRUGS (2)
  1. ENBREL [Suspect]
     Indication: RHEUMATOID ARTHRITIS
     Route: 058
     Dates: start: 20050901
  2. METHOTREXATE [Concomitant]
     Dates: start: 20050901

REACTIONS (7)
  - EAR PAIN [None]
  - HERPES ZOSTER [None]
  - HYPOAESTHESIA ORAL [None]
  - INJECTION SITE PAIN [None]
  - LOCALISED INFECTION [None]
  - ORAL DISORDER [None]
  - PYREXIA [None]
